FAERS Safety Report 26158219 (Version 2)
Quarter: 2025Q4

REPORT INFORMATION
  Report Type: Report from Study
  Country: US (occurrence: None)
  Receive Date: 20251215
  Receipt Date: 20251230
  Transmission Date: 20260117
  Serious: Yes (Other)
  Sender: UCB
  Company Number: US-UCBSA-2025067138

PATIENT
  Age: 41 Year

DRUGS (8)
  1. BRIVARACETAM [Suspect]
     Active Substance: BRIVARACETAM
     Indication: Epilepsy
     Dosage: 50MG TAKE ONE TABLET EXTRA PER DAY DURING MENSTRUATION
     Route: 061
  2. BRIVARACETAM [Suspect]
     Active Substance: BRIVARACETAM
     Indication: Seizure
     Dosage: 100 MG IN AM, 50 MG AT NOON, THEN 100 MG AT NIGHT, PLUS AN EXTRA 50 MG AT NIGHT DURING MENSTRUATION
     Route: 061
  3. BRIVARACETAM [Suspect]
     Active Substance: BRIVARACETAM
     Dosage: 100 MILLIGRAM, 3X/DAY (TID) WITH ADDITIONAL DOSE OF 50 MILLIGRAMS DURING MENSTRUAL PERIOD
     Route: 061
  4. CLOBAZAM [Concomitant]
     Active Substance: CLOBAZAM
     Indication: Seizure
     Dosage: 10 MILLIGRAM, 1 IN THE MORNING AND 1.5 TAB IN EVENING
     Route: 061
  5. GABAPENTIN [Concomitant]
     Active Substance: GABAPENTIN
     Indication: Neuralgia
     Dosage: 300 MILLIGRAM, 2X/DAY (BID)
     Route: 061
  6. CLONAZEPAM [Concomitant]
     Active Substance: CLONAZEPAM
     Indication: Seizure
     Dosage: 0.5 MILLIGRAM, AS NEEDED
     Route: 061
  7. OXCARBAZEPINE [Concomitant]
     Active Substance: OXCARBAZEPINE
     Indication: Seizure
     Dosage: 600 MILLIGRAM, 3X/DAY (TID)
     Route: 061
  8. ZONISAMIDE [Concomitant]
     Active Substance: ZONISAMIDE
     Indication: Seizure
     Dosage: 300 MG IN THE MORNING AND 200 MG IN THE EVENING
     Route: 061

REACTIONS (4)
  - Seizure [Recovering/Resolving]
  - Arthritis [Not Recovered/Not Resolved]
  - Inappropriate schedule of product administration [Unknown]
  - Overdose [Unknown]
